FAERS Safety Report 5193874-0 (Version None)
Quarter: 2006Q4

REPORT INFORMATION
  Report Type: 
  Country: None (occurrence: None)
  Receive Date: 20061222
  Receipt Date: 20061214
  Transmission Date: 20070319
  Serious: Yes (Other)
  Sender: FDA-Public Use
  Company Number: 2005103498

PATIENT
  Sex: Male
  Weight: 108.4097 kg

DRUGS (4)
  1. NEURONTIN [Suspect]
     Indication: BIPOLAR DISORDER
     Dosage: (300 MG)
     Dates: start: 20020417, end: 20030101
  2. KLONOPIN [Suspect]
     Dosage: (0.1 MG)
     Dates: start: 20000828
  3. PAXIL [Concomitant]
  4. REMERON [Concomitant]

REACTIONS (10)
  - ANGER [None]
  - ANXIETY [None]
  - DISTURBANCE IN ATTENTION [None]
  - DRUG INEFFECTIVE [None]
  - FEELING OF DESPAIR [None]
  - INJURY [None]
  - INTENTIONAL OVERDOSE [None]
  - INTENTIONAL SELF-INJURY [None]
  - MAJOR DEPRESSION [None]
  - SUICIDE ATTEMPT [None]
